FAERS Safety Report 12067274 (Version 1)
Quarter: 2016Q1

REPORT INFORMATION
  Report Type: Spontaneous
  Country: US (occurrence: US)
  Receive Date: 20160211
  Receipt Date: 20160211
  Transmission Date: 20160526
  Serious: No
  Sender: FDA-Public Use
  Company Number: US-ACTAVIS-2015-27981

PATIENT
  Sex: Female

DRUGS (1)
  1. PERMETHRIN (AMALLC) [Suspect]
     Active Substance: PERMETHRIN
     Indication: PRODUCT USED FOR UNKNOWN INDICATION
     Dosage: 5 %, UNK
     Route: 061

REACTIONS (4)
  - Drug ineffective [Unknown]
  - Product physical consistency issue [Unknown]
  - Formication [Unknown]
  - Product label confusion [None]
